FAERS Safety Report 5623889-7 (Version None)
Quarter: 2008Q1

REPORT INFORMATION
  Report Type: 
  Country: None (occurrence: None)
  Receive Date: 20080207
  Receipt Date: 20080128
  Transmission Date: 20080703
  Serious: Yes (Hospitalization)
  Sender: FDA-Public Use
  Company Number: GXKR2007ES10732

PATIENT
  Age: 74 Year
  Sex: Female

DRUGS (2)
  1. METFORMIN HCL [Suspect]
     Indication: TYPE 2 DIABETES MELLITUS
     Dosage: 850 MG, TID,
  2. GLYBURIDE [Concomitant]

REACTIONS (10)
  - ANURIA [None]
  - CONFUSIONAL STATE [None]
  - DEHYDRATION [None]
  - GASTROINTESTINAL HYPOMOTILITY [None]
  - KUSSMAUL RESPIRATION [None]
  - LACTIC ACIDOSIS [None]
  - PANCREATITIS ACUTE [None]
  - RECTAL ADENOMA [None]
  - TACHYCARDIA [None]
  - VOMITING [None]
